FAERS Safety Report 23395928 (Version 1)
Quarter: 2024Q1

REPORT INFORMATION
  Report Type: Spontaneous
  Country: US (occurrence: US)
  Receive Date: 20240112
  Receipt Date: 20240112
  Transmission Date: 20240409
  Serious: No
  Sender: FDA-Public Use
  Company Number: ENDG23-01932

PATIENT
  Age: 42 Year
  Sex: Female

DRUGS (2)
  1. METHYLPREDNISOLONE [Suspect]
     Active Substance: METHYLPREDNISOLONE
     Indication: Product used for unknown indication
     Dosage: 5 DF (4 MG TABLETS), OD (SECOND DOSE)
     Route: 048
     Dates: start: 20230415
  2. METHYLPREDNISOLONE [Suspect]
     Active Substance: METHYLPREDNISOLONE
     Dosage: 6 DF (4 MG TABLETS), DAILY (DAY ONE)
     Route: 048
     Dates: start: 20230413

REACTIONS (5)
  - Swollen tongue [Unknown]
  - Dry skin [Unknown]
  - Pruritus [Unknown]
  - Incorrect dosage administered [Unknown]
  - Product packaging issue [Unknown]

NARRATIVE: CASE EVENT DATE: 20230413
